FAERS Safety Report 23170956 (Version 1)
Quarter: 2023Q4

REPORT INFORMATION
  Report Type: Spontaneous
  Country: US (occurrence: None)
  Receive Date: 20231109
  Receipt Date: 20231109
  Transmission Date: 20240110
  Serious: Yes (Hospitalization)
  Sender: FDA-Public Use
  Company Number: None

PATIENT
  Age: 57 Year
  Sex: Female

DRUGS (10)
  1. XOLAIR [Suspect]
     Active Substance: OMALIZUMAB
     Indication: Asthma
     Dosage: OTHER QUANTITY : 75 MG/0.5ML;?FREQUENCY : AS DIRECTED;?
     Route: 058
     Dates: start: 20230120
  2. XOLAIR [Suspect]
     Active Substance: OMALIZUMAB
     Dosage: OTHER QUANTITY : 1 SYRINGE;?FREQUENCY : AS DIRECTED;?
     Route: 058
  3. DILTIAZEM [Concomitant]
  4. DUPIXENT [Concomitant]
  5. GABAPENTIN [Concomitant]
  6. PIMECROLIMUS [Concomitant]
  7. SINGULAIR [Concomitant]
     Active Substance: MONTELUKAST SODIUM
  8. TACROLIMUS [Concomitant]
     Active Substance: TACROLIMUS
  9. TREEGY [Concomitant]
  10. TRIAMCINOLON [Concomitant]

REACTIONS (1)
  - Excessive dynamic airway collapse [None]

NARRATIVE: CASE EVENT DATE: 20231030
